FAERS Safety Report 5684546-4 (Version None)
Quarter: 2008Q1

REPORT INFORMATION
  Report Type: 
  Country: None (occurrence: None)
  Receive Date: 20080328
  Receipt Date: 20070307
  Transmission Date: 20080703
  Serious: Yes (Life-Threatening)
  Sender: FDA-Public Use
  Company Number: US-BRISTOL-MYERS SQUIBB COMPANY-13666128

PATIENT
  Age: 53 Year
  Sex: Female
  Weight: 57 kg

DRUGS (6)
  1. CETUXIMAB [Suspect]
     Indication: NON-SMALL CELL LUNG CANCER
     Route: 041
     Dates: start: 20070105, end: 20070105
  2. NEXIUM [Concomitant]
  3. COUMADIN [Concomitant]
  4. FLUCONAZOLE [Concomitant]
  5. BENADRYL [Concomitant]
     Indication: PREMEDICATION
  6. ACETAMINOPHEN [Concomitant]
     Indication: PREMEDICATION

REACTIONS (4)
  - BRONCHOSPASM [None]
  - DYSPNOEA [None]
  - HYPERSENSITIVITY [None]
  - INFUSION RELATED REACTION [None]
